FAERS Safety Report 16300774 (Version 3)
Quarter: 2020Q1

REPORT INFORMATION
  Report Type: Spontaneous
  Country: US (occurrence: US)
  Receive Date: 20190510
  Receipt Date: 20200227
  Transmission Date: 20200409
  Serious: Yes (Other)
  Sender: FDA-Public Use
  Company Number: US-009507513-1905USA001525

PATIENT
  Age: 64 Year
  Sex: Male

DRUGS (2)
  1. KEYTRUDA [Suspect]
     Active Substance: PEMBROLIZUMAB
     Indication: SQUAMOUS CELL CARCINOMA OF HEAD AND NECK
     Dosage: UNK
     Dates: start: 20141021, end: 20161004
  2. KEYTRUDA [Suspect]
     Active Substance: PEMBROLIZUMAB
     Dosage: UNK, UNKNOWN
     Route: 065
     Dates: start: 20141021, end: 20161004

REACTIONS (9)
  - Arthralgia [Unknown]
  - Gallbladder enlargement [Unknown]
  - Arthritis [Recovered/Resolved]
  - Contusion [Unknown]
  - Gastrointestinal tube insertion [Recovered/Resolved]
  - Gluten sensitivity [Unknown]
  - Malignant neoplasm progression [Recovered/Resolved]
  - Malaise [Unknown]
  - Weight decreased [Unknown]

NARRATIVE: CASE EVENT DATE: 20191026
